FAERS Safety Report 5491332-7 (Version None)
Quarter: 2007Q4

REPORT INFORMATION
  Report Type: 
  Country: None (occurrence: None)
  Receive Date: 20071017
  Receipt Date: 20071011
  Transmission Date: 20080405
  Serious: Yes (Hospitalization)
  Sender: FDA-Public Use
  Company Number: 2007RL000448

PATIENT
  Sex: Male

DRUGS (10)
  1. ISRADIPINE [Suspect]
     Indication: HYPERTENSION
     Dosage: ;PO
     Route: 048
     Dates: end: 20070822
  2. HYZAAR [Suspect]
     Indication: DRUG USE FOR UNKNOWN INDICATION
     Dosage: ;PO
     Route: 048
     Dates: end: 20070820
  3. ATENOLOL [Suspect]
     Indication: HYPERTENSION
     Dosage: ;PO
     Route: 048
     Dates: end: 20070820
  4. ATACAND [Concomitant]
  5. CARDENSIEL [Concomitant]
  6. AMLOR [Concomitant]
  7. TAHOR [Concomitant]
  8. ACARBOSE [Concomitant]
  9. GLIPIZIDE [Concomitant]
  10. STAGID [Concomitant]

REACTIONS (4)
  - BRONCHITIS [None]
  - DYSPNOEA [None]
  - LEUKOPENIA [None]
  - THROMBOCYTOPENIA [None]
